FAERS Safety Report 7540718-5 (Version None)
Quarter: 2011Q2

REPORT INFORMATION
  Report Type: 
  Country: None (occurrence: None)
  Receive Date: 20110610
  Receipt Date: 20110602
  Transmission Date: 20111010
  Serious: Yes (Other)
  Sender: FDA-Public Use
  Company Number: US-ROCHE-751366

PATIENT
  Sex: Male
  Weight: 90.7 kg

DRUGS (6)
  1. MINOCYCLINE HCL [Concomitant]
  2. ACCUTANE [Suspect]
     Route: 065
     Dates: start: 19910101, end: 19920101
  3. ACCUTANE [Suspect]
     Route: 065
     Dates: start: 19950101
  4. ACCUTANE [Suspect]
     Route: 065
     Dates: start: 20020101, end: 20030101
  5. ACCUTANE [Suspect]
     Dosage: FREQUENCY: DAILY
     Route: 065
     Dates: start: 20030101, end: 20040101
  6. ACCUTANE [Suspect]
     Route: 065
     Dates: start: 19920101, end: 19930101

REACTIONS (18)
  - EMOTIONAL DISTRESS [None]
  - SUICIDE ATTEMPT [None]
  - NASAL DRYNESS [None]
  - IRRITABLE BOWEL SYNDROME [None]
  - DEPRESSION [None]
  - TINNITUS [None]
  - SUICIDAL IDEATION [None]
  - CROHN'S DISEASE [None]
  - EPISTAXIS [None]
  - CANDIDIASIS [None]
  - MENTAL DISORDER [None]
  - COLITIS [None]
  - PROCTITIS [None]
  - HAIR FOLLICLE TUMOUR BENIGN [None]
  - LIP DRY [None]
  - INFLAMMATORY BOWEL DISEASE [None]
  - MUSCULOSKELETAL PAIN [None]
  - INTERVERTEBRAL DISC DEGENERATION [None]
